FAERS Safety Report 9551487 (Version 1)
Quarter: 2013Q2

REPORT INFORMATION
  Report Type: Spontaneous
  Country: US (occurrence: None)
  Receive Date: 20130627
  Receipt Date: 20130627
  Transmission Date: 20140414
  Serious: No
  Sender: FDA-Public Use
  Company Number: 1000044157

PATIENT
  Age: 75 Year
  Sex: Female

DRUGS (6)
  1. LIZNESS [Suspect]
     Indication: CONSTIPATION
     Dosage: 1 IN 1 D
     Route: 048
     Dates: start: 201302
  2. INSULIN (INSULIN) (INSULIN) [Concomitant]
  3. RAMIPRIL (RAMIPRIL) (RAMIPRIL) [Concomitant]
  4. FUROSEMIDE [Concomitant]
  5. OMEPRAZOLE (OMEPRAZOLE) (OMEPRAZOLE) [Concomitant]
  6. ZOCOR (SIMVASTATIN) (SIMVASTATIN) [Concomitant]

REACTIONS (1)
  - Fatigue [None]
